FAERS Safety Report 6619891-9 (Version None)
Quarter: 2010Q1

REPORT INFORMATION
  Report Type: 
  Country: None (occurrence: None)
  Receive Date: 20100223
  Receipt Date: 20091109
  Transmission Date: 20100710
  Serious: No
  Sender: FDA-Public Use
  Company Number: 8047632

PATIENT
  Sex: Female

DRUGS (1)
  1. CERTOLIZUIMAB PEGOL (UCB, INC) [Suspect]
     Dosage: SUBCUTANEOUS
     Route: 058
     Dates: start: 20090511

REACTIONS (1)
  - FEELING COLD [None]
